FAERS Safety Report 15705141 (Version 1)
Quarter: 2018Q4

REPORT INFORMATION
  Report Type: Spontaneous
  Country: US (occurrence: US)
  Receive Date: 20181210
  Receipt Date: 20181210
  Transmission Date: 20190205
  Serious: No
  Sender: FDA-Public Use
  Company Number: US-009507513-1812USA001337

PATIENT
  Sex: Male

DRUGS (2)
  1. SINEMET [Suspect]
     Active Substance: CARBIDOPA\LEVODOPA
     Indication: WALKING AID USER
     Dosage: UNK
  2. NORTHERA [Suspect]
     Active Substance: DROXIDOPA

REACTIONS (2)
  - Pain in jaw [Unknown]
  - Muscle tightness [Unknown]
